FAERS Safety Report 4772331-7 (Version None)
Quarter: 2005Q3

REPORT INFORMATION
  Report Type: 
  Country: None (occurrence: None)
  Receive Date: 20050919
  Receipt Date: 20050208
  Transmission Date: 20060218
  Serious: No
  Sender: FDA-Public Use
  Company Number: US-BRISTOL-MYERS SQUIBB COMPANY-12853974

PATIENT
  Sex: Female
  Weight: 63 kg

DRUGS (3)
  1. EXCEDRIN (MIGRAINE) [Suspect]
     Indication: HEADACHE
     Route: 048
     Dates: start: 20050207
  2. AMOXICILLIN [Suspect]
     Indication: PROPHYLAXIS
     Route: 048
     Dates: start: 20050204
  3. IBUPROFEN [Concomitant]

REACTIONS (2)
  - DIZZINESS [None]
  - MALAISE [None]
